FAERS Safety Report 10064876 (Version 1)
Quarter: 2014Q2

REPORT INFORMATION
  Report Type: Spontaneous
  Country: US (occurrence: None)
  Receive Date: 20140407
  Receipt Date: 20140407
  Transmission Date: 20141212
  Serious: Yes (Hospitalization)
  Sender: FDA-Public Use
  Company Number: None

PATIENT
  Age: 66 Year
  Sex: Male
  Weight: 122.7 kg

DRUGS (3)
  1. ATOVAQUONE [Suspect]
     Indication: PLASMA CELL MYELOMA
     Route: 048
     Dates: start: 20130807, end: 20130822
  2. ATOVAQUONE [Suspect]
     Indication: PNEUMOCYSTIS JIROVECII PNEUMONIA
     Route: 048
     Dates: start: 20130807, end: 20130822
  3. ATOVAQUONE [Suspect]
     Indication: PROPHYLAXIS
     Route: 048
     Dates: start: 20130807, end: 20130822

REACTIONS (4)
  - Angioedema [None]
  - Rash [None]
  - Urticaria [None]
  - Pruritus [None]
